FAERS Safety Report 4505064-2 (Version None)
Quarter: 2004Q4

REPORT INFORMATION
  Report Type: 
  Country: None (occurrence: None)
  Receive Date: 20041015
  Receipt Date: 20040805
  Transmission Date: 20050328
  Serious: Yes (Other)
  Sender: FDA-Public Use
  Company Number: 2004054424

PATIENT
  Sex: Male

DRUGS (1)
  1. NEURONTIN [Suspect]
     Indication: NEUROPATHY

REACTIONS (13)
  - BURNING SENSATION [None]
  - DEPRESSION [None]
  - DIFFICULTY IN WALKING [None]
  - DISTURBANCE IN ATTENTION [None]
  - DIZZINESS [None]
  - FATIGUE [None]
  - JOINT INJURY [None]
  - LIMB DISCOMFORT [None]
  - MOOD ALTERED [None]
  - PAIN [None]
  - RASH PRURITIC [None]
  - SOMNOLENCE [None]
  - SUICIDE ATTEMPT [None]
